FAERS Safety Report 4468232-4 (Version None)
Quarter: 2004Q4

REPORT INFORMATION
  Report Type: 
  Country: None (occurrence: None)
  Receive Date: 20041007
  Receipt Date: 20040914
  Transmission Date: 20050328
  Serious: Yes (Hospitalization)
  Sender: FDA-Public Use
  Company Number: JP-ABBOTT-04P-087-0273232-00

PATIENT
  Sex: Female

DRUGS (13)
  1. VASOLAN [Suspect]
     Indication: ATRIAL FIBRILLATION
     Route: 048
     Dates: start: 19981001, end: 20040906
  2. VASOLAN [Suspect]
     Indication: ATRIAL FLUTTER
  3. CLARITH [Suspect]
     Indication: INFECTION
     Route: 048
     Dates: start: 20040903, end: 20040906
  4. CLARITH [Suspect]
     Indication: BRONCHITIS
  5. PIRMENOL HYDROCHLORIDE [Concomitant]
     Indication: DRUG USE FOR UNKNOWN INDICATION
     Route: 048
     Dates: start: 20000101, end: 20040906
  6. VALSARTAN [Concomitant]
     Indication: HYPERTENSION
     Route: 048
     Dates: start: 20030221, end: 20040906
  7. MECOBALAMIN [Concomitant]
     Indication: NEURALGIA
     Route: 048
     Dates: start: 20000615, end: 20040906
  8. ATORVASTATIN CALCIUM [Concomitant]
     Indication: HYPERLIPIDAEMIA
     Route: 048
     Dates: start: 20011109, end: 20040906
  9. ACETYLSALICYLIC ACID [Concomitant]
     Indication: CEREBRAL INFARCTION
     Route: 048
     Dates: start: 20020208, end: 20040906
  10. BENIDIPINE HYDROCHLORIDE [Concomitant]
     Indication: HYPERTENSION
     Route: 048
     Dates: start: 20031031, end: 20040906
  11. FOMINOBEN HYDROCHLORIDE [Concomitant]
     Indication: BRONCHITIS
     Route: 048
     Dates: start: 20040903, end: 20040906
  12. CARBOCISTEINE [Concomitant]
     Indication: BRONCHITIS
     Route: 048
     Dates: start: 20040903, end: 20040906
  13. OXATOMIDE [Concomitant]
     Indication: BRONCHITIS
     Route: 048
     Dates: start: 20040903, end: 20040906

REACTIONS (4)
  - AV DISSOCIATION [None]
  - DRUG INTERACTION [None]
  - GENERAL PHYSICAL CONDITION ABNORMAL [None]
  - SINUS BRADYCARDIA [None]
